FAERS Safety Report 21100611 (Version 1)
Quarter: 2022Q3

REPORT INFORMATION
  Report Type: Spontaneous
  Country: GB (occurrence: GB)
  Receive Date: 20220719
  Receipt Date: 20220719
  Transmission Date: 20221027
  Serious: No
  Sender: FDA-Public Use
  Company Number: None

PATIENT
  Age: 26 Year
  Sex: Female
  Weight: 70.76 kg

DRUGS (7)
  1. PAXLOVID [Suspect]
     Active Substance: NIRMATRELVIR\RITONAVIR
     Indication: Coronavirus infection
     Dosage: 3 MG
     Dates: start: 20220324
  2. ASCORBIC ACID\SODIUM ASCORBATE [Concomitant]
     Active Substance: ASCORBIC ACID\SODIUM ASCORBATE
     Indication: Vitamin supplementation
     Dosage: UNK
  3. MILLINETTE [Concomitant]
     Indication: Contraception
     Dosage: UNK
  4. SERTRALINE [Concomitant]
     Active Substance: SERTRALINE HYDROCHLORIDE
     Indication: Depression
     Dosage: UNK
  5. VEDOLIZUMAB [Concomitant]
     Active Substance: VEDOLIZUMAB
     Indication: Crohn^s disease
     Dosage: UNK
  6. MENADIONE [Concomitant]
     Active Substance: MENADIONE
     Indication: Vitamin supplementation
     Dosage: UNK
  7. ZINC [Concomitant]
     Active Substance: ZINC
     Indication: Mineral supplementation
     Dosage: UNK

REACTIONS (3)
  - Rash [Unknown]
  - Rash [Not Recovered/Not Resolved]
  - Product prescribing error [Unknown]

NARRATIVE: CASE EVENT DATE: 20220325
